FAERS Safety Report 16652111 (Version 1)
Quarter: 2019Q3

REPORT INFORMATION
  Report Type: Spontaneous
  Country: US (occurrence: US)
  Receive Date: 20190730
  Receipt Date: 20190730
  Transmission Date: 20191004
  Serious: Yes (Other)
  Sender: FDA-Public Use
  Company Number: None

PATIENT
  Age: 48 Year
  Sex: Female
  Weight: 56.25 kg

DRUGS (3)
  1. METHIMAZOLE. [Suspect]
     Active Substance: METHIMAZOLE
  2. ATHENEZOLFOR [Concomitant]
  3. METHIMIZOLE [Concomitant]

REACTIONS (9)
  - Ear pruritus [None]
  - Drug hypersensitivity [None]
  - Pain in extremity [None]
  - Ear pain [None]
  - Sensation of foreign body [None]
  - Hallucination, tactile [None]
  - Product substitution issue [None]
  - Hallucination, visual [None]
  - Basedow^s disease [None]

NARRATIVE: CASE EVENT DATE: 20190728
